FAERS Safety Report 26053082 (Version 2)
Quarter: 2025Q4

REPORT INFORMATION
  Report Type: Spontaneous
  Country: EU (occurrence: EU)
  Receive Date: 20251117
  Receipt Date: 20251201
  Transmission Date: 20260118
  Serious: Yes (Hospitalization, Disabling, Other)
  Sender: MYLAN
  Company Number: EU-MYLANLABS-2025M1096480

PATIENT
  Sex: Female

DRUGS (16)
  1. CYKLOKAPRON [Suspect]
     Active Substance: TRANEXAMIC ACID
     Indication: Heavy menstrual bleeding
     Dosage: UNK (1-2 TABLETS 1-3 TIMES PER DAY)
     Route: 065
  2. CYKLOKAPRON [Suspect]
     Active Substance: TRANEXAMIC ACID
     Dosage: UNK (1-2 TABLETS 1-3 TIMES PER DAY)
  3. CYKLOKAPRON [Suspect]
     Active Substance: TRANEXAMIC ACID
     Dosage: UNK (1-2 TABLETS 1-3 TIMES PER DAY)
  4. CYKLOKAPRON [Suspect]
     Active Substance: TRANEXAMIC ACID
     Dosage: UNK (1-2 TABLETS 1-3 TIMES PER DAY)
     Route: 065
  5. CYKLOKAPRON [Suspect]
     Active Substance: TRANEXAMIC ACID
     Dosage: 3 DOSAGE FORM, QD
     Route: 065
     Dates: start: 20250811
  6. CYKLOKAPRON [Suspect]
     Active Substance: TRANEXAMIC ACID
     Dosage: 3 DOSAGE FORM, QD
     Dates: start: 20250811
  7. CYKLOKAPRON [Suspect]
     Active Substance: TRANEXAMIC ACID
     Dosage: 3 DOSAGE FORM, QD
     Dates: start: 20250811
  8. CYKLOKAPRON [Suspect]
     Active Substance: TRANEXAMIC ACID
     Dosage: 3 DOSAGE FORM, QD
     Route: 065
     Dates: start: 20250811
  9. CYKLOKAPRON [Suspect]
     Active Substance: TRANEXAMIC ACID
     Dosage: 3 DOSAGE FORM, QD
     Dates: start: 20250812
  10. CYKLOKAPRON [Suspect]
     Active Substance: TRANEXAMIC ACID
     Dosage: 3 DOSAGE FORM, QD
     Dates: start: 20250812
  11. CYKLOKAPRON [Suspect]
     Active Substance: TRANEXAMIC ACID
     Dosage: 3 DOSAGE FORM, QD
     Route: 065
     Dates: start: 20250812
  12. CYKLOKAPRON [Suspect]
     Active Substance: TRANEXAMIC ACID
     Dosage: 3 DOSAGE FORM, QD
     Route: 065
     Dates: start: 20250812
  13. CYKLOKAPRON [Suspect]
     Active Substance: TRANEXAMIC ACID
     Dosage: 2 DOSAGE FORM, QD
     Dates: start: 20250813, end: 20250813
  14. CYKLOKAPRON [Suspect]
     Active Substance: TRANEXAMIC ACID
     Dosage: 2 DOSAGE FORM, QD
     Dates: start: 20250813, end: 20250813
  15. CYKLOKAPRON [Suspect]
     Active Substance: TRANEXAMIC ACID
     Dosage: 2 DOSAGE FORM, QD
     Route: 065
     Dates: start: 20250813, end: 20250813
  16. CYKLOKAPRON [Suspect]
     Active Substance: TRANEXAMIC ACID
     Dosage: 2 DOSAGE FORM, QD
     Route: 065
     Dates: start: 20250813, end: 20250813

REACTIONS (4)
  - Cerebrovascular accident [Recovering/Resolving]
  - Angiopathy [Unknown]
  - Dizziness [Recovered/Resolved]
  - Hypoaesthesia [Not Recovered/Not Resolved]

NARRATIVE: CASE EVENT DATE: 20250701
